FAERS Safety Report 8610039-8 (Version None)
Quarter: 2012Q3

REPORT INFORMATION
  Report Type: 
  Country: None (occurrence: None)
  Receive Date: 20120822
  Receipt Date: 20120816
  Transmission Date: 20120928
  Serious: Yes (Death, Other)
  Sender: FDA-Public Use
  Company Number: JP-AMGEN-JPNSP2012032670

PATIENT
  Age: 79 Year
  Sex: Female

DRUGS (9)
  1. ISONIAZID [Concomitant]
     Indication: TUBERCULOSIS
     Dosage: 200 MG, 1X/DAY
     Route: 048
  2. PROGRAF [Suspect]
     Indication: RHEUMATOID ARTHRITIS
     Dosage: 1 MG, 1X/DAY
     Route: 048
  3. PREDNISOLONE [Concomitant]
     Indication: RHEUMATOID ARTHRITIS
     Dosage: 5 MG, 1X/DAY (3 MG IN THE MORNING AND 2 MG IN EVENING)
     Route: 048
  4. REBAMIPIDE [Concomitant]
     Indication: GASTRITIS
     Dosage: 100 MG, 2X/DAY
     Route: 048
  5. FOLIC ACID [Concomitant]
     Indication: FOLATE DEFICIENCY
     Dosage: 5 MG, 1X/DAY
     Route: 048
  6. RHEUMATREX [Suspect]
     Indication: RHEUMATOID ARTHRITIS
     Dosage: 6 MG (2 MG X 3 TIMES) , WEEKLY
     Route: 048
  7. ENBREL [Suspect]
     Indication: RHEUMATOID ARTHRITIS
     Dosage: 25 MG, 1X/DAY
     Route: 058
     Dates: start: 20060615, end: 20120327
  8. ENBREL [Suspect]
     Dosage: 50 MG, 1X/DAY
     Route: 058
     Dates: start: 20120328, end: 20120501
  9. PYDOXAL [Concomitant]
     Indication: VITAMIN B1 DEFICIENCY
     Dosage: 10 MG, 2X/DAY
     Route: 048

REACTIONS (2)
  - INTERSTITIAL LUNG DISEASE [None]
  - RESPIRATORY FAILURE [None]
